FAERS Safety Report 6861029-7 (Version None)
Quarter: 2010Q3

REPORT INFORMATION
  Report Type: 
  Country: None (occurrence: None)
  Receive Date: 20100720
  Receipt Date: 20100709
  Transmission Date: 20110219
  Serious: Yes (Other)
  Sender: FDA-Public Use
  Company Number: US-JNJCH-2010016377

PATIENT
  Age: 19 Year
  Sex: Male
  Weight: 83.9 kg

DRUGS (1)
  1. LISTERINE TOTAL CARE ANTICAVITY MOUTHWASH [Suspect]
     Indication: DENTAL DISORDER PROPHYLAXIS
     Dosage: TEXT:TWO TEASPOONFUL TWICE DAILY
     Route: 048
     Dates: start: 20100515, end: 20100520

REACTIONS (4)
  - CONDITION AGGRAVATED [None]
  - GINGIVAL BLEEDING [None]
  - GINGIVAL EROSION [None]
  - GINGIVAL PAIN [None]
